FAERS Safety Report 8081510-5 (Version None)
Quarter: 2012Q1

REPORT INFORMATION
  Report Type: 
  Country: None (occurrence: None)
  Receive Date: 20120130
  Receipt Date: 20120116
  Transmission Date: 20120608
  Serious: Yes (Hospitalization, Other)
  Sender: FDA-Public Use
  Company Number: PHHY2011TN108295

PATIENT
  Sex: Female

DRUGS (7)
  1. GLEEVEC [Suspect]
     Indication: CHRONIC MYELOID LEUKAEMIA
     Dosage: 600 MG, DAILY
     Route: 048
     Dates: start: 20110503
  2. HYDREA [Suspect]
     Dosage: 3 DF, (3 CAPS A DAY)
  3. GLEEVEC [Suspect]
     Dosage: 400 MG, DAILY
     Route: 048
     Dates: end: 20110531
  4. GLEEVEC [Suspect]
     Dosage: 200 MG, DAILY
     Route: 048
     Dates: start: 20111122, end: 20111220
  5. ALLOPURINOL [Concomitant]
     Dosage: UNK
  6. MORPHINE SULFATE [Concomitant]
     Dosage: UNK
  7. GLEEVEC [Suspect]
     Dosage: 200 MG, DAILY
     Route: 048
     Dates: start: 20110813, end: 20110913

REACTIONS (10)
  - BONE PAIN [None]
  - CHRONIC MYELOID LEUKAEMIA [None]
  - NEUTROPENIA [None]
  - NIGHT SWEATS [None]
  - ANAEMIA [None]
  - BRONCHIAL DISORDER [None]
  - GENERAL PHYSICAL CONDITION ABNORMAL [None]
  - MYELOCYTOSIS [None]
  - NEOPLASM MALIGNANT [None]
  - HAEMATOTOXICITY [None]
